FAERS Safety Report 24573430 (Version 1)
Quarter: 2024Q4

REPORT INFORMATION
  Report Type: Spontaneous
  Country: US (occurrence: US)
  Receive Date: 20241102
  Receipt Date: 20241102
  Transmission Date: 20250115
  Serious: Yes (Other)
  Sender: RISING PHARMACEUTICALS
  Company Number: US-RISINGPHARMA-US-2024RISSPO00386

PATIENT
  Sex: Female

DRUGS (1)
  1. ORPHENADRINE CITRATE [Suspect]
     Active Substance: ORPHENADRINE CITRATE
     Indication: Product used for unknown indication
     Route: 065

REACTIONS (2)
  - Eye operation [Unknown]
  - Adverse event [Unknown]
